FAERS Safety Report 4611591-X (Version None)
Quarter: 2005Q1

REPORT INFORMATION
  Report Type: 
  Country: None (occurrence: None)
  Receive Date: 20050317
  Receipt Date: 20050207
  Transmission Date: 20050727
  Serious: Yes (Other)
  Sender: FDA-Public Use
  Company Number: 2005JP000089

PATIENT
  Age: 87 Year
  Sex: Female

DRUGS (1)
  1. SAWACILLIN [Suspect]
     Indication: NASOPHARYNGITIS
     Dosage: 250MG THREE TIMES PER DAY
     Route: 048
     Dates: start: 20041217, end: 20041221

REACTIONS (3)
  - DISSEMINATED INTRAVASCULAR COAGULATION [None]
  - IDIOPATHIC THROMBOCYTOPENIC PURPURA [None]
  - THROMBOCYTOPENIA [None]
